FAERS Safety Report 4300702-1 (Version None)
Quarter: 2004Q1

REPORT INFORMATION
  Report Type: 
  Country: None (occurrence: None)
  Receive Date: 20040220
  Receipt Date: 20040213
  Transmission Date: 20041129
  Serious: Yes (Hospitalization, Other)
  Sender: FDA-Public Use
  Company Number: US-BRISTOL-MYERS SQUIBB COMPANY-12504924

PATIENT
  Age: 62 Year
  Sex: Female

DRUGS (1)
  1. COUMADIN [Suspect]

REACTIONS (5)
  - DEEP VEIN THROMBOSIS [None]
  - DISABILITY [None]
  - LEG CRUSHING [None]
  - PULMONARY THROMBOSIS [None]
  - ROAD TRAFFIC ACCIDENT [None]
